FAERS Safety Report 6783260-1 (Version None)
Quarter: 2010Q2

REPORT INFORMATION
  Report Type: 
  Country: None (occurrence: None)
  Receive Date: 20100622
  Receipt Date: 20100613
  Transmission Date: 20101027
  Serious: Yes (Hospitalization)
  Sender: FDA-Public Use
  Company Number: IL-NOVOPROD-310186

PATIENT
  Age: 83 Year
  Sex: Female
  Weight: 57 kg

DRUGS (1)
  1. LEVEMIR [Suspect]
     Indication: TYPE 2 DIABETES MELLITUS
     Dosage: 6 U, QD
     Dates: start: 20100526

REACTIONS (1)
  - INTESTINAL OBSTRUCTION [None]
